FAERS Safety Report 24243080 (Version 1)
Quarter: 2024Q3

REPORT INFORMATION
  Report Type: Report from Study
  Country: US (occurrence: None)
  Receive Date: 20240823
  Receipt Date: 20240823
  Transmission Date: 20241017
  Serious: Yes (Hospitalization)
  Sender: ASTRAZENECA
  Company Number: 2023A121785

PATIENT

DRUGS (1)
  1. FARXIGA [Suspect]
     Active Substance: DAPAGLIFLOZIN PROPANEDIOL
     Route: 048

REACTIONS (6)
  - Blood glucose increased [Unknown]
  - Bone disorder [Unknown]
  - Peripheral swelling [Unknown]
  - Blood glucose fluctuation [Unknown]
  - Limb discomfort [Unknown]
  - Product use issue [Unknown]
